FAERS Safety Report 9190431 (Version 3)
Quarter: 2013Q3

REPORT INFORMATION
  Report Type: Spontaneous
  Country: BR (occurrence: BR)
  Receive Date: 20130326
  Receipt Date: 20130918
  Transmission Date: 20140515
  Serious: Yes (Other)
  Sender: FDA-Public Use
  Company Number: BR-PFIZER INC-2012229692

PATIENT
  Age: 53 Year
  Sex: Female
  Weight: 52 kg

DRUGS (14)
  1. EFEXOR XR [Suspect]
     Indication: DEPRESSION
     Dosage: 75 MG IN THE MORNING AND 150 MG AT NIGHT
     Route: 048
     Dates: start: 2003, end: 2006
  2. EFEXOR XR [Suspect]
     Indication: BIPOLAR DISORDER
     Dosage: 150 MG, 1X/DAY
     Route: 048
     Dates: start: 2009
  3. EFEXOR XR [Suspect]
     Dosage: 75 MG, 1X/DAY
     Dates: start: 20130830, end: 2013
  4. EFEXOR XR [Suspect]
     Dosage: 150 MG, 1X/DAY
     Dates: start: 2013
  5. VENLAFAXINE HCL [Suspect]
     Dosage: UNK
     Dates: start: 2007
  6. CARBOLITIUM [Suspect]
     Dosage: UNK
  7. ALPRAZOLAM [Concomitant]
     Dosage: UNK
  8. LOSARTAN [Concomitant]
     Dosage: UNK
  9. RIVOTRIL [Concomitant]
     Dosage: UNK
  10. CLORANA [Concomitant]
     Dosage: UNK
  11. NIFEDIPINE [Concomitant]
     Dosage: UNK
  12. HYDROCHLOROTHIAZIDE [Concomitant]
     Dosage: UNK
  13. PREDNISONE [Concomitant]
     Dosage: UNK
  14. RAZAPINA [Concomitant]
     Dosage: 30 MG, UNK

REACTIONS (13)
  - Paralysis [Unknown]
  - Off label use [Not Recovered/Not Resolved]
  - Feeling abnormal [Unknown]
  - Syncope [Unknown]
  - Blood pressure increased [Unknown]
  - Nervousness [Unknown]
  - Feeling abnormal [Not Recovered/Not Resolved]
  - Fluid retention [Unknown]
  - Condition aggravated [Unknown]
  - Incorrect dose administered [Unknown]
  - Blood pressure decreased [Unknown]
  - Paraesthesia [Unknown]
  - Gait disturbance [Unknown]
